FAERS Safety Report 8313686-6 (Version None)
Quarter: 2012Q2

REPORT INFORMATION
  Report Type: 
  Country: None (occurrence: None)
  Receive Date: 20120426
  Receipt Date: 20120418
  Transmission Date: 20120825
  Serious: Yes (Life-Threatening)
  Sender: FDA-Public Use
  Company Number: BR-ELI_LILLY_AND_COMPANY-BR201204006461

PATIENT
  Sex: Female
  Weight: 134 kg

DRUGS (6)
  1. VITAMIN B-12 [Concomitant]
     Dosage: UNK, UNKNOWN
     Route: 065
  2. SYNTHROID [Concomitant]
     Indication: HYPOTHYROIDISM
     Dosage: UNK, UNKNOWN
     Route: 065
  3. ALIMTA [Suspect]
     Indication: ADENOCARCINOMA
     Dosage: 10 MG, OTHER
     Route: 065
     Dates: start: 20120130
  4. CLORANA [Concomitant]
     Indication: DIURETIC THERAPY
     Dosage: UNK, UNKNOWN
     Route: 065
  5. ATENOLOL [Concomitant]
     Indication: HYPERTENSION
     Dosage: UNK, UNKNOWN
     Route: 065
  6. FOLIC ACID [Concomitant]
     Dosage: UNK, UNKNOWN
     Route: 065

REACTIONS (7)
  - CONSTIPATION [None]
  - ALOPECIA [None]
  - ANAPHYLACTIC SHOCK [None]
  - NAUSEA [None]
  - PAIN IN EXTREMITY [None]
  - BODY TEMPERATURE INCREASED [None]
  - VOMITING [None]
